FAERS Safety Report 8266487-1 (Version None)
Quarter: 2012Q2

REPORT INFORMATION
  Report Type: 
  Country: None (occurrence: None)
  Receive Date: 20120406
  Receipt Date: 20120329
  Transmission Date: 20120825
  Serious: Yes (Hospitalization)
  Sender: FDA-Public Use
  Company Number: FR-ASTRAZENECA-2012SE21393

PATIENT
  Age: 21231 Day
  Sex: Male

DRUGS (3)
  1. ATACAND [Suspect]
     Indication: HYPERTENSION
     Route: 048
  2. XYZAL [Concomitant]
  3. ASPIRIN [Concomitant]

REACTIONS (2)
  - GASTROENTERITIS VIRAL [None]
  - RENAL FAILURE ACUTE [None]
